FAERS Safety Report 14630403 (Version 1)
Quarter: 2018Q1

REPORT INFORMATION
  Report Type: Spontaneous
  Country: US (occurrence: US)
  Receive Date: 20180313
  Receipt Date: 20180313
  Transmission Date: 20180509
  Serious: Yes (Other)
  Sender: FDA-Public Use
  Company Number: US-MYLANLABS-2018M1014352

PATIENT
  Sex: Female
  Weight: 73 kg

DRUGS (5)
  1. TAGRISSO [Concomitant]
     Active Substance: OSIMERTINIB
     Dosage: 2 DF, QOD
  2. TAGRISSO [Concomitant]
     Active Substance: OSIMERTINIB
     Indication: PRODUCT USED FOR UNKNOWN INDICATION
     Dosage: 1 DF, QOD
  3. TYLENOL [Concomitant]
     Active Substance: ACETAMINOPHEN
     Indication: PRODUCT USED FOR UNKNOWN INDICATION
     Dosage: 2 DF, Q8H
  4. FENTANYL TRANSDERMAL SYSTEM [Suspect]
     Active Substance: FENTANYL
     Indication: CANCER PAIN
     Dosage: 12 ?G, Q3D
     Route: 062
     Dates: start: 201708
  5. FENTANYL TRANSDERMAL SYSTEM [Suspect]
     Active Substance: FENTANYL
     Dosage: UNK

REACTIONS (6)
  - Product adhesion issue [Not Recovered/Not Resolved]
  - Diarrhoea [Not Recovered/Not Resolved]
  - Drug ineffective [Not Recovered/Not Resolved]
  - Visual impairment [Not Recovered/Not Resolved]
  - Rash [Not Recovered/Not Resolved]
  - Wrong technique in product usage process [Recovered/Resolved]
